FAERS Safety Report 18259585 (Version 4)
Quarter: 2021Q4

REPORT INFORMATION
  Report Type: Report from Study
  Country: GE (occurrence: None)
  Receive Date: 20200912
  Receipt Date: 20211124
  Transmission Date: 20220303
  Serious: Yes (Hospitalization)
  Sender: FDA-Public Use
  Company Number: GE-ROCHE-2675472

PATIENT
  Age: 62 Year
  Sex: Male

DRUGS (4)
  1. ATEZOLIZUMAB [Suspect]
     Active Substance: ATEZOLIZUMAB
     Indication: Hepatocellular carcinoma
     Dosage: MOST RECENT DOSE OF ATEZOLIZUMAB PRIOR TO THE EVENT ONSET: 04/AUG/2020
     Route: 042
     Dates: start: 20200421, end: 20201021
  2. CABOZANTINIB [Suspect]
     Active Substance: CABOZANTINIB
     Indication: Hepatocellular carcinoma
     Dosage: ON AN UNKNOWN DATE, THE PATIENT RECEIVED CABOZANTINIB AT A DOSE OF 20 MG?MOST RECENT DOSE OF CABOZAN
     Route: 048
     Dates: start: 20200421, end: 20201021
  3. CABOZANTINIB [Suspect]
     Active Substance: CABOZANTINIB
     Route: 048
  4. HEPTRAL [ADEMETIONINE] [Concomitant]

REACTIONS (1)
  - Pneumonitis [Recovered/Resolved]

NARRATIVE: CASE EVENT DATE: 20200901
